FAERS Safety Report 6902512-5 (Version None)
Quarter: 2010Q3

REPORT INFORMATION
  Report Type: 
  Country: None (occurrence: None)
  Receive Date: 20100730
  Receipt Date: 20100721
  Transmission Date: 20110219
  Serious: Yes (Other)
  Sender: FDA-Public Use
  Company Number: 651666

PATIENT
  Sex: Male

DRUGS (2)
  1. CARBOPLATIN [Suspect]
     Indication: LUNG NEOPLASM MALIGNANT
     Dosage: INTRAVENOUS
     Route: 042
  2. NAVELBINE [Suspect]
     Indication: LUNG NEOPLASM MALIGNANT
     Dosage: ORAL
     Route: 048

REACTIONS (1)
  - ILEUS PARALYTIC [None]
